FAERS Safety Report 17560302 (Version 1)
Quarter: 2020Q1

REPORT INFORMATION
  Report Type: Spontaneous
  Country: US (occurrence: US)
  Receive Date: 20200311
  Receipt Date: 20200311
  Transmission Date: 20200409
  Serious: Yes (Hospitalization)
  Sender: FDA-Public Use
  Company Number: None

PATIENT
  Age: 84 Year
  Sex: Male
  Weight: 65.5 kg

DRUGS (3)
  1. DEXAMETHASONE. [Suspect]
     Active Substance: DEXAMETHASONE
     Dates: end: 20180202
  2. VELCADE [Suspect]
     Active Substance: BORTEZOMIB
     Dates: end: 20180201
  3. LENALIDOMIDE (CC-5013) [Suspect]
     Active Substance: LENALIDOMIDE
     Dates: end: 20190601

REACTIONS (9)
  - Supraventricular extrasystoles [None]
  - Pneumonia [None]
  - Cardiac tamponade [None]
  - Cardiac disorder [None]
  - Influenza [None]
  - Mitral valve incompetence [None]
  - Pleural effusion [None]
  - Atrial fibrillation [None]
  - Pericardial effusion [None]

NARRATIVE: CASE EVENT DATE: 20200221
